FAERS Safety Report 4704014-3 (Version None)
Quarter: 2005Q2

REPORT INFORMATION
  Report Type: 
  Country: None (occurrence: None)
  Receive Date: 20050629
  Receipt Date: 20050614
  Transmission Date: 20051028
  Serious: No
  Sender: FDA-Public Use
  Company Number: 11569

PATIENT
  Age: 45 Year
  Sex: Male

DRUGS (3)
  1. VINCRISTINE [Suspect]
     Indication: HODGKIN'S DISEASE
     Dosage: 16.8 MG/M2 TOTAL;
  2. PROCARBAZINE [Suspect]
     Indication: HODGKIN'S DISEASE
     Dosage: 1200 MG/M2 TOTAL;
  3. CHLORMETHINE [Suspect]
     Indication: HODGKIN'S DISEASE
     Dosage: 72 MG/M2 TOTAL;

REACTIONS (1)
  - ACUTE PROMYELOCYTIC LEUKAEMIA [None]
